FAERS Safety Report 4601400-7 (Version None)
Quarter: 2005Q1

REPORT INFORMATION
  Report Type: 
  Country: None (occurrence: None)
  Receive Date: 20050308
  Receipt Date: 20050204
  Transmission Date: 20050727
  Serious: Yes (Hospitalization)
  Sender: FDA-Public Use
  Company Number: BE-ABBOTT-05P-013-0290338-00

PATIENT
  Sex: Male
  Weight: 61 kg

DRUGS (3)
  1. KALETRA [Suspect]
     Indication: HIV INFECTION
     Route: 048
     Dates: start: 20040913, end: 20041109
  2. LAMIVUDINE AND ZIDOVUDINE [Concomitant]
     Indication: DRUG USE FOR UNKNOWN INDICATION
     Dosage: 300/600
  3. NEVIRAPINE [Concomitant]
     Indication: DRUG USE FOR UNKNOWN INDICATION
     Dates: start: 20050201

REACTIONS (6)
  - ABDOMINAL PAIN [None]
  - ANOREXIA [None]
  - CHILLS [None]
  - CHROMATURIA [None]
  - CYTOLYTIC HEPATITIS [None]
  - VOMITING [None]
